FAERS Safety Report 9210181 (Version 2)
Quarter: 2013Q2

REPORT INFORMATION
  Report Type: Spontaneous
  Country: CA (occurrence: CA)
  Receive Date: 20130404
  Receipt Date: 20130416
  Transmission Date: 20140414
  Serious: Yes (Hospitalization)
  Sender: FDA-Public Use
  Company Number: CA-PFIZER INC-2013104377

PATIENT
  Age: 58 Year
  Sex: Male
  Weight: 72.56 kg

DRUGS (8)
  1. ATIVAN [Suspect]
     Indication: ANXIETY
     Dosage: 1 MG, AS NEEDED
     Dates: start: 1971
  2. ATIVAN [Suspect]
     Indication: PANIC ATTACK
  3. ATIVAN [Suspect]
     Indication: ANXIETY
     Dosage: UNK
     Route: 042
  4. ATIVAN [Suspect]
     Indication: PANIC ATTACK
  5. DIAZEPAM [Suspect]
     Dosage: 2.5 MG, 2X/DAY
     Dates: start: 1997
  6. METOCLOPRAMIDE HCL [Suspect]
     Indication: GASTROINTESTINAL DISORDER
     Dosage: UNK
     Dates: start: 1997
  7. LIPITOR [Suspect]
     Indication: BLOOD CHOLESTEROL INCREASED
     Dosage: 20 MG, 1X/DAY
  8. CRESTOR [Concomitant]
     Indication: BLOOD CHOLESTEROL INCREASED
     Dosage: 20 MG, 1X/DAY
     Dates: start: 2011

REACTIONS (1)
  - Myocardial infarction [Unknown]
